FAERS Safety Report 16909482 (Version 1)
Quarter: 2019Q4

REPORT INFORMATION
  Report Type: Spontaneous
  Country: US (occurrence: US)
  Receive Date: 20191011
  Receipt Date: 20191011
  Transmission Date: 20200122
  Serious: No
  Sender: FDA-Public Use
  Company Number: US-BAUSCH-BL-2019-054973

PATIENT
  Sex: Female
  Weight: 51.71 kg

DRUGS (2)
  1. VASOTEC [Suspect]
     Active Substance: ENALAPRIL MALEATE
     Indication: BLOOD PRESSURE MEASUREMENT
     Route: 065
  2. CARDIZEM [Suspect]
     Active Substance: DILTIAZEM HYDROCHLORIDE
     Indication: BLOOD PRESSURE MEASUREMENT
     Route: 065

REACTIONS (2)
  - Unevaluable event [Unknown]
  - Drug ineffective [Unknown]
